FAERS Safety Report 9677139 (Version 4)
Quarter: 2014Q1

REPORT INFORMATION
  Report Type: Spontaneous
  Country: DE (occurrence: DE)
  Receive Date: 20131108
  Receipt Date: 20140204
  Transmission Date: 20141002
  Serious: Yes (Hospitalization)
  Sender: FDA-Public Use
  Company Number: DE-RANBAXY-2013RR-74992

PATIENT
  Age: 24 Year
  Sex: Female
  Weight: 68 kg

DRUGS (9)
  1. PARACETAMOL [Suspect]
     Indication: PROCEDURAL PAIN
     Dosage: 500 MG, QID
     Route: 048
     Dates: start: 20131014, end: 20131014
  2. NOVALGIN [Suspect]
     Indication: PROCEDURAL PAIN
     Dosage: 1 G
     Route: 042
     Dates: start: 20131014, end: 20131014
  3. NOVALGIN [Suspect]
     Indication: PROCEDURAL PAIN
     Dosage: 500 MG
     Route: 048
     Dates: start: 20131014, end: 20131014
  4. PANTOZOL [Suspect]
     Indication: GASTRITIS PROPHYLAXIS
     Dosage: 20 MG, QD
     Route: 048
     Dates: start: 20131014, end: 20131014
  5. DOLO-DOBENDAN [Concomitant]
     Indication: OROPHARYNGEAL PAIN
     Dosage: ONCE
     Route: 048
     Dates: start: 20131014, end: 20131014
  6. TRANXILIUM [Concomitant]
     Indication: PREMEDICATION
     Dosage: UNK
     Route: 048
     Dates: start: 20131014, end: 20131014
  7. DIPIDOLOR [Concomitant]
     Indication: ANALGESIC THERAPY
     Dosage: IF REQUIRED
     Route: 058
     Dates: start: 20131014
  8. DIPIDOLOR [Concomitant]
     Indication: ANALGESIC THERAPY
     Dosage: IF REQUIRED
     Route: 042
     Dates: start: 20131014
  9. FRAXIPARIN [Concomitant]
     Indication: THROMBOSIS PROPHYLAXIS
     Dosage: UNK
     Route: 065
     Dates: start: 20131004

REACTIONS (1)
  - Agranulocytosis [Not Recovered/Not Resolved]
